FAERS Safety Report 18466272 (Version 1)
Quarter: 2020Q4

REPORT INFORMATION
  Report Type: Spontaneous
  Country: CN (occurrence: CN)
  Receive Date: 20201105
  Receipt Date: 20201105
  Transmission Date: 20210114
  Serious: Yes (Other)
  Sender: FDA-Public Use
  Company Number: CN-BAXTER-2020BAX022288

PATIENT
  Age: 37 Year
  Sex: Female
  Weight: 86 kg

DRUGS (13)
  1. 0.9% SODIUM CHLORIDE INJECTION [Suspect]
     Active Substance: SODIUM CHLORIDE
     Dosage: FIFTH CHEMOTHERAPY, CYCLOPHOSPHAMIDE 1000 MG + NS 50 ML
     Route: 042
     Dates: start: 20200804, end: 20200804
  2. 0.9% SODIUM CHLORIDE INJECTION [Suspect]
     Active Substance: SODIUM CHLORIDE
     Dosage: DOSE RE-INTRODUCED, EPIRUBICIN+ NS
     Route: 041
  3. PHARMORUBICIN [Suspect]
     Active Substance: EPIRUBICIN
     Dosage: FIFTH CHEMOTHERAPY EPIRUBICIN 150 MG+ 100 ML NS
     Route: 041
     Dates: start: 20200804, end: 20200804
  4. PHARMORUBICIN [Suspect]
     Active Substance: EPIRUBICIN
     Dosage: DOSE RE-INTRODUCED, EPIRUBICIN + NS
     Route: 041
  5. ENDOXAN [Suspect]
     Active Substance: CYCLOPHOSPHAMIDE
     Indication: BREAST CANCER FEMALE
     Dosage: 1-4 CHEMOTHERAPIES
     Route: 042
  6. 0.9% SODIUM CHLORIDE INJECTION [Suspect]
     Active Substance: SODIUM CHLORIDE
     Dosage: DOSE RE-INTRODUCED, CYCLOPHOSPHAMIDE + NS
     Route: 042
  7. 0.9% SODIUM CHLORIDE INJECTION [Suspect]
     Active Substance: SODIUM CHLORIDE
     Indication: MEDICATION DILUTION
     Dosage: 1-4 CHEMOTHERAPIES, CYCLOPHOSPHAMIDE + NS
     Route: 042
  8. PHARMORUBICIN [Suspect]
     Active Substance: EPIRUBICIN
     Indication: BREAST CANCER FEMALE
     Dosage: 1-4 CHEMOTHERAPIES, EPIRUBICIN + NS
     Route: 041
  9. JINYOULI [Concomitant]
     Active Substance: ANF-RHO
     Indication: PROPHYLAXIS
     Route: 058
     Dates: start: 20200805
  10. ENDOXAN [Suspect]
     Active Substance: CYCLOPHOSPHAMIDE
     Dosage: DOSE RE-INTRODUCED, CYCLOPHOSPHAMIDE + NS
     Route: 042
  11. 0.9% SODIUM CHLORIDE INJECTION [Suspect]
     Active Substance: SODIUM CHLORIDE
     Dosage: 1-4 CHEMOTHERAPIES, EPIRUBICIN + NS
     Route: 041
  12. 0.9% SODIUM CHLORIDE INJECTION [Suspect]
     Active Substance: SODIUM CHLORIDE
     Dosage: FIFTH CHEMOTHERAPY, EPIRUBICIN 130 MG+ 100 ML NS
     Route: 041
     Dates: start: 20200804, end: 20200804
  13. ENDOXAN [Suspect]
     Active Substance: CYCLOPHOSPHAMIDE
     Dosage: 5TH CHEMOTHERAPY CYCLE, CYCLOPHOSPHAMIDE 1000 MG + 50 ML NORMAL SALINE
     Route: 042
     Dates: start: 20200804, end: 20200804

REACTIONS (2)
  - Leukopenia [Recovering/Resolving]
  - Agranulocytosis [Recovering/Resolving]

NARRATIVE: CASE EVENT DATE: 20200811
